FAERS Safety Report 24587764 (Version 1)
Quarter: 2024Q4

REPORT INFORMATION
  Report Type: Spontaneous
  Country: SG (occurrence: SG)
  Receive Date: 20241107
  Receipt Date: 20241107
  Transmission Date: 20250115
  Serious: Yes (Other)
  Sender: CHATTEM
  Company Number: SG-OPELLA-2024OHG036841

PATIENT
  Age: 65 Year
  Sex: Female

DRUGS (1)
  1. FEXOFENADINE [Suspect]
     Active Substance: FEXOFENADINE HYDROCHLORIDE
     Indication: Product used for unknown indication
     Route: 065

REACTIONS (2)
  - Conjunctivitis allergic [Unknown]
  - Angioedema [Unknown]

NARRATIVE: CASE EVENT DATE: 20241019
